FAERS Safety Report 21446060 (Version 1)
Quarter: 2022Q4

REPORT INFORMATION
  Report Type: Report from Study
  Country: US (occurrence: US)
  Receive Date: 20221012
  Receipt Date: 20221012
  Transmission Date: 20230113
  Serious: Yes (Hospitalization)
  Sender: FDA-Public Use
  Company Number: US-BIOVITRUM-2022US10485

PATIENT
  Sex: Male

DRUGS (2)
  1. KINERET [Suspect]
     Active Substance: ANAKINRA
     Indication: Rheumatoid arthritis
     Dates: start: 20220831
  2. KINERET [Suspect]
     Active Substance: ANAKINRA
     Dosage: 100 MILLIGRAM 7 DAYS ON, ONE DAY OFF, 14 DAYS ON, ONE DAY OFF, 7 DAYS ON, ONE DAY OFF.

REACTIONS (4)
  - Pruritus [Unknown]
  - Rash [Recovered/Resolved]
  - Ankle fracture [Unknown]
  - Off label use [Unknown]
